FAERS Safety Report 6509635-3 (Version None)
Quarter: 2009Q4

REPORT INFORMATION
  Report Type: 
  Country: None (occurrence: None)
  Receive Date: 20091221
  Receipt Date: 20091221
  Transmission Date: 20100525
  Serious: No
  Sender: FDA-Public Use
  Company Number: None

PATIENT
  Sex: Female
  Weight: 69.4 kg

DRUGS (3)
  1. CYTARABINE [Suspect]
     Dosage: 2464 MG
  2. DAUNORUBICIN HCL [Suspect]
     Dosage: 352 MG
  3. TRETINOIN [Suspect]
     Dosage: 1360 MG

REACTIONS (5)
  - ABDOMINAL PAIN [None]
  - BLOOD PRESSURE SYSTOLIC DECREASED [None]
  - CAECITIS [None]
  - DIARRHOEA HAEMORRHAGIC [None]
  - PYREXIA [None]
